FAERS Safety Report 6436599-3 (Version None)
Quarter: 2009Q4

REPORT INFORMATION
  Report Type: 
  Country: None (occurrence: None)
  Receive Date: 20091111
  Receipt Date: 20091028
  Transmission Date: 20100525
  Serious: Yes (Hospitalization, Other)
  Sender: FDA-Public Use
  Company Number: JP-GENENTECH-271904

PATIENT
  Sex: Male
  Weight: 69 kg

DRUGS (8)
  1. AVASTIN [Suspect]
     Indication: RECTAL CANCER RECURRENT
     Dosage: 5 MG/KG, Q2W
     Route: 041
     Dates: start: 20080128, end: 20081027
  2. TENORMIN [Suspect]
     Indication: HYPERTENSION
     Dosage: 1 DF, BID
     Route: 048
  3. LANDEL [Suspect]
     Indication: HYPERTENSION
     Dosage: 1 DF, BID
     Route: 048
  4. DOXAZOSIN MESYLATE [Suspect]
     Indication: HYPERTENSION
     Dosage: UNK
     Route: 048
  5. AMARYL [Suspect]
     Indication: DIABETES MELLITUS
     Dosage: 1 DF, BID
     Route: 048
  6. CALCIUM LEVOFOLINATE [Concomitant]
     Indication: DRUG USE FOR UNKNOWN INDICATION
     Dosage: UNK
     Dates: start: 20071001
  7. FLUOROURACIL [Concomitant]
     Indication: DRUG USE FOR UNKNOWN INDICATION
     Dosage: UNK
     Dates: start: 20071001
  8. IRINOTECAN HCL [Concomitant]
     Indication: DRUG USE FOR UNKNOWN INDICATION
     Dosage: UNK
     Dates: start: 20071001

REACTIONS (2)
  - GASTRIC ULCER [None]
  - THROMBOSIS [None]
